FAERS Safety Report 16514529 (Version 2)
Quarter: 2019Q4

REPORT INFORMATION
  Report Type: Report from Study
  Country: CO (occurrence: CO)
  Receive Date: 20190702
  Receipt Date: 20191115
  Transmission Date: 20200122
  Serious: Yes (Death, Life-Threatening, Hospitalization, Other)
  Sender: FDA-Public Use
  Company Number: PHHY2019CO009778

PATIENT
  Age: 43 Year
  Sex: Female
  Weight: 65 kg

DRUGS (7)
  1. TASIGNA [Suspect]
     Active Substance: NILOTINIB
     Indication: ACUTE LYMPHOCYTIC LEUKAEMIA
  2. ACYCLOVIR. [Concomitant]
     Active Substance: ACYCLOVIR
     Indication: ANTIFUNGAL PROPHYLAXIS
     Dosage: UNK UNK, Q12H
     Route: 048
     Dates: start: 201805
  3. AMLODIPINE [Concomitant]
     Active Substance: AMLODIPINE BESYLATE
     Indication: PRODUCT USED FOR UNKNOWN INDICATION
     Dosage: UNK
     Route: 065
  4. DEXAMETHASONE. [Suspect]
     Active Substance: DEXAMETHASONE
     Indication: PRODUCT USED FOR UNKNOWN INDICATION
     Route: 065
  5. TASIGNA [Suspect]
     Active Substance: NILOTINIB
     Indication: CHRONIC MYELOID LEUKAEMIA
     Dosage: 800 MG, QD
     Route: 048
     Dates: start: 20181207, end: 20190606
  6. PIPERACILLIN AND TAZOBACTAM [Suspect]
     Active Substance: PIPERACILLIN SODIUM\TAZOBACTAM SODIUM
     Indication: PRODUCT USED FOR UNKNOWN INDICATION
     Route: 065
  7. FILGRASTIM [Concomitant]
     Active Substance: FILGRASTIM
     Indication: PRODUCT USED FOR UNKNOWN INDICATION
     Route: 065

REACTIONS (13)
  - Febrile neutropenia [Recovered/Resolved]
  - Arthralgia [Unknown]
  - Pain in extremity [Unknown]
  - Disease recurrence [Unknown]
  - Death [Fatal]
  - Platelet count decreased [Unknown]
  - Epistaxis [Recovered/Resolved]
  - Acute lymphocytic leukaemia [Unknown]
  - Hypertension [Unknown]
  - Malaise [Not Recovered/Not Resolved]
  - Chest pain [Unknown]
  - Inappropriate schedule of product administration [Unknown]
  - Product use in unapproved indication [Unknown]

NARRATIVE: CASE EVENT DATE: 201901
